FAERS Safety Report 7015736-6 (Version None)
Quarter: 2010Q3

REPORT INFORMATION
  Report Type: 
  Country: None (occurrence: None)
  Receive Date: 20100927
  Receipt Date: 20100726
  Transmission Date: 20110219
  Serious: No
  Sender: FDA-Public Use
  Company Number: US-ASTRAZENECA-2010SE33596

PATIENT
  Age: 61 Year
  Sex: Female
  Weight: 80.7 kg

DRUGS (8)
  1. ARIMIDEX [Suspect]
     Route: 048
     Dates: start: 20100301
  2. NIFEDIPINE [Concomitant]
  3. SIMVASTATIN [Concomitant]
  4. HYDROCHLOROTHIAZIDE [Concomitant]
  5. VITAMINS [Concomitant]
  6. NEURONTIN [Concomitant]
  7. AMYTRIPTYLINE [Concomitant]
  8. VISTARIL [Concomitant]

REACTIONS (6)
  - ARTHRALGIA [None]
  - AXILLARY PAIN [None]
  - BLOOD CHOLESTEROL INCREASED [None]
  - BREAST PAIN [None]
  - NEUROPATHY PERIPHERAL [None]
  - OEDEMA PERIPHERAL [None]
